FAERS Safety Report 5745440-3 (Version None)
Quarter: 2008Q2

REPORT INFORMATION
  Report Type: 
  Country: None (occurrence: None)
  Receive Date: 20080521
  Receipt Date: 20080513
  Transmission Date: 20081010
  Serious: Yes (Death)
  Sender: FDA-Public Use
  Company Number: JP-JNJFOC-20080305205

PATIENT
  Sex: Female

DRUGS (6)
  1. TOPINA [Suspect]
     Indication: EPILEPSY
     Route: 048
  2. ALEVIATIN [Concomitant]
     Route: 048
  3. TEGRETOL [Concomitant]
     Route: 048
  4. ALFAROL [Concomitant]
     Route: 048
  5. CEFZON [Concomitant]
     Route: 048
  6. LEFTOSE [Concomitant]
     Route: 048

REACTIONS (4)
  - BLOOD PRESSURE DECREASED [None]
  - CARDIAC FAILURE [None]
  - DEEP VEIN THROMBOSIS [None]
  - PULMONARY INFARCTION [None]
